FAERS Safety Report 16437195 (Version 15)
Quarter: 2022Q3

REPORT INFORMATION
  Report Type: Report from Study
  Country: JP (occurrence: JP)
  Receive Date: 20190615
  Receipt Date: 20220906
  Transmission Date: 20221027
  Serious: Yes (Death, Hospitalization, Other)
  Sender: FDA-Public Use
  Company Number: JP-ONO-2019JP020910

PATIENT
  Age: 73 Year
  Sex: Male
  Weight: 43.8 kg

DRUGS (8)
  1. ETELCALCETIDE [Suspect]
     Active Substance: ETELCALCETIDE
     Indication: Hyperparathyroidism secondary
     Dosage: 5 MILLIGRAM
     Route: 065
     Dates: start: 20180710, end: 20180906
  2. ETELCALCETIDE [Suspect]
     Active Substance: ETELCALCETIDE
     Dosage: 2.5 MILLIGRAM
     Route: 065
     Dates: start: 20180908
  3. ROCALTROL [Concomitant]
     Active Substance: CALCITRIOL
     Dosage: 0.5 MICROGRAM, Q56H
     Route: 051
  4. ROCALTROL [Concomitant]
     Active Substance: CALCITRIOL
     Dosage: 1 UG, Q56H
     Route: 051
     Dates: start: 20180811, end: 20181016
  5. ROCALTROL [Concomitant]
     Active Substance: CALCITRIOL
     Dosage: 0.5 MICROGRAM, Q56H
     Route: 051
     Dates: start: 20181018
  6. ROCALTROL [Concomitant]
     Active Substance: CALCITRIOL
     Dosage: 0.5 UG, Q56H
     Route: 065
  7. ROCALTROL [Concomitant]
     Active Substance: CALCITRIOL
     Dosage: 0.5 UG, Q56H
     Dates: start: 20181018
  8. TANKARU [Concomitant]
     Dosage: 1000 MG, EVERYDAY
     Route: 065
     Dates: end: 20190527

REACTIONS (5)
  - Sepsis [Fatal]
  - Eating disorder [Not Recovered/Not Resolved]
  - Delirium [Not Recovered/Not Resolved]
  - Lung neoplasm malignant [Recovered/Resolved]
  - Haematemesis [Recovered/Resolved]

NARRATIVE: CASE EVENT DATE: 20181211
